FAERS Safety Report 10940194 (Version 2)
Quarter: 2015Q2

REPORT INFORMATION
  Report Type: Spontaneous
  Country: US (occurrence: US)
  Receive Date: 20150322
  Receipt Date: 20150525
  Transmission Date: 20150821
  Serious: Yes (Life-Threatening, Hospitalization)
  Sender: FDA-Public Use
  Company Number: US-JNJFOC-20140926777

PATIENT
  Age: 59 Year
  Sex: Male
  Weight: 78.02 kg

DRUGS (3)
  1. NUCYNTA [Suspect]
     Active Substance: TAPENTADOL HYDROCHLORIDE
     Indication: NEURALGIA
     Dosage: 75 MG EVERY 6 HOURS
     Route: 048
     Dates: start: 20140710, end: 20140920
  2. VITAMIN C [Concomitant]
     Active Substance: ASCORBIC ACID
     Indication: VITAMIN SUPPLEMENTATION
     Route: 065
  3. GLUCOSAMINE [Concomitant]
     Active Substance: GLUCOSAMINE
     Route: 065

REACTIONS (1)
  - Generalised tonic-clonic seizure [Recovered/Resolved with Sequelae]

NARRATIVE: CASE EVENT DATE: 20140920
